FAERS Safety Report 21784869 (Version 1)
Quarter: 2022Q4

REPORT INFORMATION
  Report Type: Spontaneous
  Country: US (occurrence: None)
  Receive Date: 20221223
  Receipt Date: 20221223
  Transmission Date: 20230113
  Serious: Yes (Hospitalization)
  Sender: FDA-Public Use
  Company Number: None

PATIENT
  Age: 57 Year
  Sex: Male

DRUGS (1)
  1. EGRIFTA SV [Suspect]
     Active Substance: TESAMORELIN ACETATE
     Dosage: FREQUENCY : DAILY;?
     Route: 058
     Dates: start: 202007

REACTIONS (1)
  - Appendicectomy [None]

NARRATIVE: CASE EVENT DATE: 20221209
